FAERS Safety Report 20205384 (Version 2)
Quarter: 2022Q1

REPORT INFORMATION
  Report Type: Spontaneous
  Country: US (occurrence: None)
  Receive Date: 20211220
  Receipt Date: 20220117
  Transmission Date: 20220423
  Serious: No
  Sender: FDA-Public Use
  Company Number: 2021A850228

PATIENT
  Sex: Male

DRUGS (1)
  1. BUDESONIDE\FORMOTEROL\GLYCOPYRRONIUM [Suspect]
     Active Substance: BUDESONIDE\FORMOTEROL\GLYCOPYRRONIUM
     Dosage: 120 INHALATION CANISTER
     Route: 055

REACTIONS (4)
  - Gait disturbance [Unknown]
  - Fatigue [Unknown]
  - Device delivery system issue [Unknown]
  - Device occlusion [Unknown]
